FAERS Safety Report 5580028-9 (Version None)
Quarter: 2007Q4

REPORT INFORMATION
  Report Type: 
  Country: None (occurrence: None)
  Receive Date: 20071227
  Receipt Date: 20071227
  Transmission Date: 20080405
  Serious: Yes (Hospitalization, Other)
  Sender: FDA-Public Use
  Company Number: None

PATIENT
  Age: 76 Year
  Sex: Female
  Weight: 38.5557 kg

DRUGS (9)
  1. BONIVA [Suspect]
     Indication: FRACTURE
     Dosage: ONCE IV DRIP
     Route: 041
     Dates: start: 20071219, end: 20071219
  2. BONIVA [Suspect]
     Indication: PROPHYLAXIS
     Dosage: ONCE IV DRIP
     Route: 041
     Dates: start: 20071219, end: 20071219
  3. BLOOD THINNER [Concomitant]
  4. STEROIDS [Concomitant]
  5. BLOOD PRESSURE MEDICINE [Concomitant]
  6. THYROID MEDICINE [Concomitant]
  7. SUPPOSITORY FOR HEMORRHOIDS [Concomitant]
  8. EYE DROPS FOR GLAUCOMA [Concomitant]
  9. VITAMINS [Concomitant]

REACTIONS (5)
  - ABNORMAL BEHAVIOUR [None]
  - AGGRESSION [None]
  - INJURY [None]
  - MENTAL DISORDER [None]
  - SEDATION [None]
